FAERS Safety Report 10955971 (Version 2)
Quarter: 2015Q2

REPORT INFORMATION
  Report Type: Spontaneous
  Country: US (occurrence: US)
  Receive Date: 20150326
  Receipt Date: 20150526
  Transmission Date: 20150821
  Serious: No
  Sender: FDA-Public Use
  Company Number: US-JNJFOC-20141208816

PATIENT
  Age: 57 Year
  Sex: Male
  Weight: 99.79 kg

DRUGS (9)
  1. ISENTRESS [Concomitant]
     Active Substance: RALTEGRAVIR POTASSIUM
     Route: 065
  2. TRIAMTERENE. [Concomitant]
     Active Substance: TRIAMTERENE
     Route: 065
  3. METHADONE [Concomitant]
     Active Substance: METHADONE HYDROCHLORIDE
     Route: 065
  4. PREZISTA [Concomitant]
     Active Substance: DARUNAVIR ETHANOLATE
     Route: 065
  5. PROPRANOLOL [Concomitant]
     Active Substance: PROPRANOLOL\PROPRANOLOL HYDROCHLORIDE
     Route: 065
  6. NORVIR [Concomitant]
     Active Substance: RITONAVIR
     Route: 065
  7. TRAMADOL [Concomitant]
     Active Substance: TRAMADOL
     Route: 065
  8. INTELENCE [Suspect]
     Active Substance: ETRAVIRINE
     Indication: HIV TEST POSITIVE
     Route: 048
  9. LYRICA [Concomitant]
     Active Substance: PREGABALIN
     Route: 065

REACTIONS (2)
  - Product size issue [Unknown]
  - Dysphagia [Not Recovered/Not Resolved]

NARRATIVE: CASE EVENT DATE: 20141204
